FAERS Safety Report 9856257 (Version 2)
Quarter: 2014Q3

REPORT INFORMATION
  Report Type: Spontaneous
  Country: US (occurrence: US)
  Receive Date: 20140130
  Receipt Date: 20140722
  Transmission Date: 20150326
  Serious: Yes (Hospitalization)
  Sender: FDA-Public Use
  Company Number: US-009507513-1401USA009979

PATIENT
  Sex: Female

DRUGS (1)
  1. NUVARING [Suspect]
     Active Substance: ETHINYL ESTRADIOL\ETONOGESTREL
     Indication: CONTRACEPTION
     Dosage: UNK
     Route: 067
     Dates: end: 20100620

REACTIONS (10)
  - Transverse sinus thrombosis [Unknown]
  - Embolism venous [Unknown]
  - Depression [Unknown]
  - Carotid arteriosclerosis [Unknown]
  - Fistula [Unknown]
  - Brain mass [Unknown]
  - Haemorrhagic cerebral infarction [Unknown]
  - Alcoholism [Unknown]
  - Venous angioma of brain [Unknown]
  - Hypertension [Unknown]

NARRATIVE: CASE EVENT DATE: 201006
